FAERS Safety Report 13302749 (Version 1)
Quarter: 2017Q1

REPORT INFORMATION
  Report Type: Spontaneous
  Country: CH (occurrence: CH)
  Receive Date: 20170307
  Receipt Date: 20170307
  Transmission Date: 20170428
  Serious: Yes (Hospitalization)
  Sender: FDA-Public Use
  Company Number: CH-NAPPMUNDI-GBR-2017-0043928

PATIENT
  Age: 87 Year
  Sex: Female

DRUGS (19)
  1. PURSANA [Concomitant]
     Active Substance: FIG FRUIT OIL\SORBITOL
  2. MYDOCALM                           /00293002/ [Suspect]
     Active Substance: TOLPERISONE HYDROCHLORIDE
     Dosage: 87.5 MG, DAILY
     Route: 048
     Dates: start: 20161121, end: 20161121
  3. DAFALGAN [Concomitant]
     Active Substance: ACETAMINOPHEN
  4. VENLAFAXINE [Suspect]
     Active Substance: VENLAFAXINE HYDROCHLORIDE
     Indication: PRODUCT USED FOR UNKNOWN INDICATION
     Dosage: 37.5 MG, DAILY
     Route: 065
     Dates: start: 20161123
  5. MYDOCALM                           /00293002/ [Suspect]
     Active Substance: TOLPERISONE HYDROCHLORIDE
     Indication: PRODUCT USED FOR UNKNOWN INDICATION
     Dosage: 150 MG, DAILY
     Route: 048
     Dates: start: 20161123, end: 20161123
  6. HALDOL [Concomitant]
     Active Substance: HALOPERIDOL
     Dosage: UNK, PRN
  7. VENLAFAXINE [Suspect]
     Active Substance: VENLAFAXINE HYDROCHLORIDE
     Dosage: 75 MG, DAILY
     Route: 065
     Dates: start: 2016, end: 20161122
  8. LAXOBERON [Concomitant]
     Active Substance: SODIUM PICOSULFATE
  9. PREDNISONE. [Concomitant]
     Active Substance: PREDNISONE
  10. VITAMIN D                          /00107901/ [Concomitant]
     Active Substance: ERGOCALCIFEROL
  11. VENLAFAXINE [Suspect]
     Active Substance: VENLAFAXINE HYDROCHLORIDE
     Dosage: UNK
     Route: 065
     Dates: start: 201601, end: 20161122
  12. MYDOCALM                           /00293002/ [Suspect]
     Active Substance: TOLPERISONE HYDROCHLORIDE
     Dosage: 125 MG, DAILY
     Route: 048
     Dates: start: 20161122, end: 20161122
  13. SINTROM [Concomitant]
     Active Substance: ACENOCOUMAROL
  14. SEVREDOL [Suspect]
     Active Substance: MORPHINE
     Indication: PRODUCT USED FOR UNKNOWN INDICATION
     Route: 065
  15. ENALAPRIL [Concomitant]
     Active Substance: ENALAPRIL
  16. DISTRANEURINE                      /00027501/ [Concomitant]
  17. MOTILIUM [Concomitant]
     Active Substance: DOMPERIDONE
     Dosage: UNK, PRN
  18. REMERON [Suspect]
     Active Substance: MIRTAZAPINE
     Indication: DEPRESSIVE SYMPTOM
     Dosage: 7.5 MG, DAILY
     Route: 048
     Dates: start: 20161130, end: 20161205
  19. TEMESTA                            /00273201/ [Concomitant]
     Active Substance: LORAZEPAM

REACTIONS (1)
  - Rash erythematous [Recovered/Resolved]

NARRATIVE: CASE EVENT DATE: 20161205
